FAERS Safety Report 5231302-7 (Version None)
Quarter: 2007Q1

REPORT INFORMATION
  Report Type: 
  Country: None (occurrence: None)
  Receive Date: 20070202
  Receipt Date: 20070122
  Transmission Date: 20070707
  Serious: Yes (Death, Hospitalization)
  Sender: FDA-Public Use
  Company Number: 32798-2

PATIENT
  Age: 55 Year
  Sex: Male
  Weight: 85 kg

DRUGS (1)
  1. ETOPOSIDE [Suspect]
     Indication: SMALL CELL LUNG CANCER STAGE UNSPECIFIED
     Dosage: 200MG/IV
     Route: 042
     Dates: start: 20061113

REACTIONS (4)
  - LUNG ABSCESS [None]
  - PANCYTOPENIA [None]
  - PYOTHORAX [None]
  - SEPSIS [None]
